FAERS Safety Report 21974718 (Version 2)
Quarter: 2023Q2

REPORT INFORMATION
  Report Type: Spontaneous
  Country: JP (occurrence: JP)
  Receive Date: 20230209
  Receipt Date: 20230406
  Transmission Date: 20230721
  Serious: Yes (Hospitalization, Other)
  Sender: FDA-Public Use
  Company Number: JP-ELI_LILLY_AND_COMPANY-JP202302004058

PATIENT
  Age: 4 Year
  Sex: Male
  Weight: 13.7 kg

DRUGS (19)
  1. TADALAFIL [Suspect]
     Active Substance: TADALAFIL
     Indication: Pulmonary arterial hypertension
     Dosage: 21 MG, DAILY
     Route: 065
     Dates: start: 20170406
  2. UPTRAVI [Suspect]
     Active Substance: SELEXIPAG
     Indication: Pulmonary arterial hypertension
     Dosage: 0.03 MG, BID
     Route: 048
     Dates: start: 20170417, end: 20170419
  3. UPTRAVI [Suspect]
     Active Substance: SELEXIPAG
     Dosage: 0.06 MG, BID
     Route: 048
     Dates: start: 20170420, end: 20170423
  4. UPTRAVI [Suspect]
     Active Substance: SELEXIPAG
     Dosage: 0.09 MG, BID
     Route: 048
     Dates: start: 20170424, end: 20170426
  5. UPTRAVI [Suspect]
     Active Substance: SELEXIPAG
     Dosage: 0.1 MG, BID
     Route: 048
     Dates: start: 20170427, end: 20170430
  6. UPTRAVI [Suspect]
     Active Substance: SELEXIPAG
     Dosage: 0.165 MG, BID
     Route: 048
     Dates: start: 20170501, end: 20170507
  7. UPTRAVI [Suspect]
     Active Substance: SELEXIPAG
     Dosage: 0.225 MG, BID
     Route: 048
     Dates: start: 20170508, end: 20170510
  8. UPTRAVI [Suspect]
     Active Substance: SELEXIPAG
     Dosage: 0.28 MG, BID
     Route: 048
     Dates: start: 20170511, end: 20170514
  9. UPTRAVI [Suspect]
     Active Substance: SELEXIPAG
     Dosage: 0.325 MG, BID
     Route: 048
     Dates: start: 20170515, end: 20170517
  10. UPTRAVI [Suspect]
     Active Substance: SELEXIPAG
     Dosage: 0.375 MG, BID
     Route: 048
     Dates: start: 20170518, end: 20170521
  11. UPTRAVI [Suspect]
     Active Substance: SELEXIPAG
     Dosage: 0.435 MG, BID
     Route: 048
     Dates: start: 20170522, end: 20180318
  12. UPTRAVI [Suspect]
     Active Substance: SELEXIPAG
     Dosage: 0.45 MG, BID
     Route: 048
     Dates: start: 20180319
  13. UPTRAVI [Suspect]
     Active Substance: SELEXIPAG
     Dosage: 1 MG, DAILY
     Route: 048
     Dates: start: 20191026
  14. OPSUMIT [Concomitant]
     Active Substance: MACITENTAN
     Indication: Pulmonary arterial hypertension
     Dosage: 3 MG, DAILY
     Route: 048
     Dates: start: 20170331, end: 20181129
  15. OPSUMIT [Concomitant]
     Active Substance: MACITENTAN
     Dosage: 3.2 MG, DAILY
     Route: 048
     Dates: start: 20181130, end: 20190314
  16. OPSUMIT [Concomitant]
     Active Substance: MACITENTAN
     Dosage: 3.3 MG, DAILY
     Route: 048
     Dates: start: 20190315
  17. OPSUMIT [Concomitant]
     Active Substance: MACITENTAN
     Dosage: 10 MG, UNKNOWN
  18. CARVEDILOL [Concomitant]
     Active Substance: CARVEDILOL
     Indication: Product used for unknown indication
     Dosage: 0.15 MG, DAILY
     Route: 065
     Dates: start: 20170524
  19. CARVEDILOL [Concomitant]
     Active Substance: CARVEDILOL
     Indication: Product used for unknown indication
     Dosage: 4 MG, DAILY
     Route: 065

REACTIONS (3)
  - Loss of consciousness [Recovered/Resolved]
  - Loss of consciousness [Recovered/Resolved]
  - Off label use [Unknown]

NARRATIVE: CASE EVENT DATE: 20170728
